FAERS Safety Report 16371864 (Version 1)
Quarter: 2019Q2

REPORT INFORMATION
  Report Type: Spontaneous
  Country: FR (occurrence: FR)
  Receive Date: 20190530
  Receipt Date: 20190530
  Transmission Date: 20190711
  Serious: Yes (Hospitalization)
  Sender: FDA-Public Use
  Company Number: FR-PFIZER INC-2019222143

PATIENT
  Age: 51 Year
  Sex: Female
  Weight: 85.3 kg

DRUGS (10)
  1. SURGESTONE [Concomitant]
     Active Substance: PROMEGESTONE
     Dosage: UNK
  2. DOLIPRANE [Concomitant]
     Active Substance: ACETAMINOPHEN
     Dosage: UNK
  3. DEXERYL [CHLORPHENAMINE MALEATE;DEXTROMETHORPHAN HYDROBROMIDE;GUAIFENE [Concomitant]
     Dosage: UNK
  4. OMEPRAZOLE. [Concomitant]
     Active Substance: OMEPRAZOLE
     Dosage: UNK
  5. SOTALOL HCL [Concomitant]
     Active Substance: SOTALOL
     Dosage: UNK
  6. PACLITAXEL. [Suspect]
     Active Substance: PACLITAXEL
     Indication: BREAST CANCER
     Dosage: UNK
     Route: 041
     Dates: start: 20190314, end: 20190329
  7. DESLORATADINE. [Concomitant]
     Active Substance: DESLORATADINE
     Dosage: UNK
  8. VASTAREL LM [Concomitant]
     Dosage: UNK
  9. VOLTARENE (DICLOFENAC SODIUM) [Concomitant]
     Active Substance: DICLOFENAC SODIUM
     Dosage: UNK
  10. SPASFON [PHLOROGLUCINOL;TRIMETHYLPHLOROGLUCINOL] [Concomitant]
     Active Substance: PHLOROGLUCINOL\1,3,5-TRIMETHOXYBENZENE
     Dosage: UNK

REACTIONS (1)
  - Acute pulmonary oedema [Recovered/Resolved]

NARRATIVE: CASE EVENT DATE: 20190328
